FAERS Safety Report 11322937 (Version 2)
Quarter: 2015Q3

REPORT INFORMATION
  Report Type: Spontaneous
  Country: DE (occurrence: DE)
  Receive Date: 20150730
  Receipt Date: 20150917
  Transmission Date: 20151125
  Serious: Yes (Hospitalization)
  Sender: FDA-Public Use
  Company Number: DE-BIOGENIDEC-2015BI103081

PATIENT
  Sex: Female

DRUGS (11)
  1. MONO EMBOLEX (CERTOPARIN) [Concomitant]
     Route: 058
  2. AZARGA EYEDROPS [Concomitant]
     Route: 031
  3. INFLANEFRAN (PREDNISOLONE) EYEDROPS [Concomitant]
     Route: 031
  4. PANTOZOL [Concomitant]
     Active Substance: PANTOPRAZOLE SODIUM
  5. TECFIDERA [Suspect]
     Active Substance: DIMETHYL FUMARATE
     Indication: MULTIPLE SCLEROSIS
     Route: 048
     Dates: start: 201303, end: 2015
  6. NOVALGIN [Concomitant]
     Active Substance: METAMIZOLE SODIUM
  7. PANTOPRAZOLE [Concomitant]
     Active Substance: PANTOPRAZOLE SODIUM
     Route: 048
     Dates: start: 20150527
  8. PANTOPRAZOLE [Concomitant]
     Active Substance: PANTOPRAZOLE SODIUM
     Dates: start: 20150717
  9. LYRICA (PREGABALIN [Concomitant]
     Route: 048
  10. OXYGESIC [Concomitant]
     Active Substance: OXYCODONE
  11. CLOPIDOGREL [Concomitant]
     Active Substance: CLOPIDOGREL BISULFATE

REACTIONS (3)
  - Hemiparesis [Unknown]
  - Multiple sclerosis relapse [Unknown]
  - Adenocarcinoma of colon [Unknown]

NARRATIVE: CASE EVENT DATE: 201503
